FAERS Safety Report 22976301 (Version 4)
Quarter: 2023Q4

REPORT INFORMATION
  Report Type: Other
  Country: VN (occurrence: None)
  Receive Date: 20230925
  Receipt Date: 20231202
  Transmission Date: 20240110
  Serious: Yes (Hospitalization)
  Sender: FDA-Public Use
  Company Number: VN-ROCHE-3426691

PATIENT
  Age: 77 Year
  Sex: Male

DRUGS (1)
  1. TECENTRIQ [Suspect]
     Active Substance: ATEZOLIZUMAB
     Indication: Small cell lung cancer extensive stage
     Dosage: ON 31/AUG/2023, HE RECEIVED THE LAST DOSE OF TECENTRIQ?MOST RECENT DOSE 28/NOV/2023
     Route: 041
     Dates: start: 20230831

REACTIONS (2)
  - Pyrexia [Recovered/Resolved]
  - Anaemia [Recovering/Resolving]

NARRATIVE: CASE EVENT DATE: 20230918
